FAERS Safety Report 14516455 (Version 6)
Quarter: 2018Q2

REPORT INFORMATION
  Report Type: Spontaneous
  Country: JP (occurrence: JP)
  Receive Date: 20180212
  Receipt Date: 20180607
  Transmission Date: 20180711
  Serious: Yes (Other)
  Sender: FDA-Public Use
  Company Number: JP-AMGEN-JPNSP2018016996

PATIENT
  Age: 85 Year
  Sex: Female

DRUGS (19)
  1. REGPARA [Suspect]
     Active Substance: CINACALCET HYDROCHLORIDE
     Indication: HYPERPARATHYROIDISM SECONDARY
     Dosage: 12.5 MG, UNK
     Route: 065
     Dates: start: 20171213, end: 20171213
  2. PROCYLIN [Concomitant]
     Active Substance: BERAPROST SODIUM
     Dosage: UNK
     Route: 048
  3. AZILVA [Concomitant]
     Active Substance: AZILSARTAN KAMEDOXOMIL
     Dosage: UNK
     Route: 048
     Dates: start: 20171018
  4. MIRCERA [Concomitant]
     Active Substance: METHOXY POLYETHYLENE GLYCOL-EPOETIN BETA
     Dosage: UNK
     Route: 042
     Dates: start: 20171115
  5. RIONA [Concomitant]
     Active Substance: FERRIC CITRATE ANHYDROUS
     Dosage: UNK
     Route: 048
     Dates: start: 20170807
  6. MAXACALCITOL [Concomitant]
     Active Substance: MAXACALCITOL
     Dosage: UNK
     Route: 065
     Dates: start: 20171201
  7. TAKECAB [Concomitant]
     Active Substance: VONOPRAZAN FUMURATE
     Dosage: UNK
     Route: 048
     Dates: start: 20171229
  8. CONIEL [Concomitant]
     Active Substance: BENIDIPINE HYDROCHLORIDE
     Dosage: UNK
     Route: 048
     Dates: start: 20171016
  9. PARSABIV [Suspect]
     Active Substance: ETELCALCETIDE HYDROCHLORIDE
     Indication: HYPERPARATHYROIDISM SECONDARY
     Dosage: 2.5 MG, 3X/WEEK
     Route: 042
     Dates: start: 20180108, end: 20180119
  10. BAYASPIRIN [Concomitant]
     Active Substance: ASPIRIN
     Dosage: UNK
     Route: 048
     Dates: start: 20090918
  11. REMITCH [Concomitant]
     Active Substance: NALFURAFINE HYDROCHLORIDE
     Dosage: UNK
     Route: 048
     Dates: start: 20170703
  12. NEXIUM [Concomitant]
     Active Substance: ESOMEPRAZOLE MAGNESIUM
     Dosage: UNK
     Route: 048
  13. BELSOMRA [Concomitant]
     Active Substance: SUVOREXANT
     Dosage: UNK
     Route: 048
     Dates: start: 20161119
  14. LANDSEN [Concomitant]
     Active Substance: CLONAZEPAM
     Dosage: UNK
     Route: 048
     Dates: start: 20171011
  15. HERBESSER [Concomitant]
     Active Substance: DILTIAZEM HYDROCHLORIDE
  16. RIVOTRIL [Concomitant]
     Active Substance: CLONAZEPAM
     Dosage: UNK
     Route: 048
     Dates: start: 20170920
  17. PRECIPITATED CALCIUM CARBONATE [Concomitant]
     Active Substance: CALCIUM CARBONATE
     Dosage: UNK
     Route: 048
     Dates: start: 20180105
  18. PHOSBLOCK [Concomitant]
     Active Substance: FERRIC HYDROXIDE
     Dosage: UNK
     Route: 048
     Dates: start: 20180105
  19. NEUPRO [Concomitant]
     Active Substance: ROTIGOTINE
     Dosage: UNK
     Route: 062
     Dates: start: 20170519

REACTIONS (3)
  - Electrocardiogram QT prolonged [Recovered/Resolved]
  - Electrocardiogram QT prolonged [Recovered/Resolved]
  - Vomiting [Unknown]

NARRATIVE: CASE EVENT DATE: 20180119
